FAERS Safety Report 25086294 (Version 1)
Quarter: 2025Q1

REPORT INFORMATION
  Report Type: Report from Study
  Country: KR (occurrence: KR)
  Receive Date: 20250317
  Receipt Date: 20250317
  Transmission Date: 20250409
  Serious: Yes (Hospitalization)
  Sender: PFIZER
  Company Number: KR-PFIZER INC-PV202500031100

PATIENT
  Age: 70 Year
  Sex: Male
  Weight: 55.85 kg

DRUGS (37)
  1. VINCRISTINE SULFATE [Suspect]
     Active Substance: VINCRISTINE SULFATE
     Indication: Diffuse large B-cell lymphoma
     Dosage: UNK, EVERY 3 WEEKS, REGIMEN #1
     Route: 042
     Dates: start: 20210622
  2. INVESTIGATIONAL PRODUCT [Suspect]
     Active Substance: INVESTIGATIONAL PRODUCT
     Indication: Diffuse large B-cell lymphoma
     Route: 042
     Dates: start: 20210622, end: 20211005
  3. INVESTIGATIONAL PRODUCT [Suspect]
     Active Substance: INVESTIGATIONAL PRODUCT
     Indication: Diffuse large B-cell lymphoma
     Route: 048
     Dates: start: 20210622, end: 20211009
  4. RITUXIMAB [Suspect]
     Active Substance: RITUXIMAB
     Indication: Diffuse large B-cell lymphoma
     Dosage: UNK, EVERY 3 WEEKS, INFUSION, REGIMEN #1
     Route: 042
     Dates: start: 20210622
  5. CYCLOPHOSPHAMIDE [Suspect]
     Active Substance: CYCLOPHOSPHAMIDE
     Indication: Diffuse large B-cell lymphoma
     Dosage: UNK, EVERY 3 WEEKS, INFUSION, REGIMEN #1
     Route: 042
     Dates: start: 20210622
  6. DOXORUBICIN [Suspect]
     Active Substance: DOXORUBICIN
     Indication: Diffuse large B-cell lymphoma
     Dosage: UNK, EVERY 3 WEEKS, REGIMEN #1
     Route: 042
     Dates: start: 20210622
  7. PREDNISOLONE [Suspect]
     Active Substance: PREDNISOLONE
     Indication: Diffuse large B-cell lymphoma
     Dosage: UNK, EVERY 3 WEEKS, MILLIGRAM/SQ. METER, REGIMEN #1
     Dates: start: 20210622
  8. ASPIRIN [Concomitant]
     Active Substance: ASPIRIN
     Indication: Thrombosis prophylaxis
     Dosage: 1.25 MG, 1X/DAY
     Route: 048
     Dates: start: 20210622, end: 20211029
  9. CONBLOC [Concomitant]
     Indication: Angina pectoris
     Dosage: 4 MG, 1X/DAY
     Route: 048
     Dates: start: 20210714, end: 20220518
  10. ATACAND [Concomitant]
     Active Substance: CANDESARTAN CILEXETIL
     Indication: Hypertension
     Dosage: 4 MG, 1X/DAY
     Route: 048
     Dates: start: 20210714, end: 20220518
  11. SODIUM BICARBONATE [Concomitant]
     Active Substance: SODIUM BICARBONATE
     Indication: Stomatitis
     Route: 061
     Dates: start: 20210804, end: 20221012
  12. SULFAMETHOXAZOLE\TRIMETHOPRIM [Concomitant]
     Active Substance: SULFAMETHOXAZOLE\TRIMETHOPRIM
     Indication: Prophylaxis
     Dosage: 1 T, 1X/DAY
     Route: 048
     Dates: start: 20210823, end: 20211009
  13. BETHANECHOL CHLORIDE [Concomitant]
     Active Substance: BETHANECHOL CHLORIDE
     Indication: Benign prostatic hyperplasia
     Dosage: 25 MG, 3X/DAY
     Route: 048
     Dates: start: 20210906, end: 20220505
  14. HARNAL [Concomitant]
     Active Substance: TAMSULOSIN HYDROCHLORIDE
     Indication: Benign prostatic hyperplasia
     Dosage: 0.2 MG, 1X/DAY
     Route: 048
     Dates: start: 20210907, end: 20220505
  15. GLUCOPHAGE [Concomitant]
     Active Substance: METFORMIN HYDROCHLORIDE
     Indication: Diabetes mellitus
     Dosage: 250 MG, 1X/DAY
     Route: 048
     Dates: start: 20211004, end: 20211007
  16. PLAVIX [Concomitant]
     Active Substance: CLOPIDOGREL BISULFATE
     Indication: Angina pectoris
     Dosage: 75 MG, 1X/DAY
     Route: 048
     Dates: start: 20211004, end: 20211007
  17. NORVASC [Concomitant]
     Active Substance: AMLODIPINE BESYLATE
     Indication: Hypertension
     Dosage: 2.5 MG, 1X/DAY
     Route: 048
     Dates: start: 20211004, end: 20211007
  18. EZET [Concomitant]
     Indication: Dyslipidaemia
     Dosage: 10 MG, 1X/DAY
     Route: 048
     Dates: start: 20211004, end: 20211007
  19. CRESTOR [Concomitant]
     Active Substance: ROSUVASTATIN CALCIUM
     Indication: Dyslipidaemia
     Dosage: 5 MG, 1X/DAY
     Route: 048
     Dates: start: 20211004, end: 20211007
  20. HEPARIN [Concomitant]
     Active Substance: HEPARIN SODIUM
     Indication: Heparin neutralisation therapy
     Route: 042
     Dates: start: 20211005, end: 20211005
  21. HEPARIN [Concomitant]
     Active Substance: HEPARIN SODIUM
     Route: 042
     Dates: start: 20211007, end: 20211007
  22. REBAMIPIDE [Concomitant]
     Active Substance: REBAMIPIDE
     Indication: Prophylaxis
     Dosage: 100 MG, 3X/DAY
     Route: 048
     Dates: start: 20211005, end: 20211009
  23. CHLORHEXIDINE GLUCONATE [Concomitant]
     Active Substance: CHLORHEXIDINE GLUCONATE
     Indication: Stomatitis
     Route: 061
     Dates: start: 20211005, end: 20211006
  24. LIPEGFILGRASTIM [Concomitant]
     Active Substance: LIPEGFILGRASTIM
     Indication: Prophylaxis
     Route: 058
     Dates: start: 20211006, end: 20211006
  25. TANTUM [BENZYDAMINE HYDROCHLORIDE] [Concomitant]
     Indication: Stomatitis
     Route: 061
     Dates: start: 20211006, end: 20211012
  26. SMOFLIPID [Concomitant]
     Active Substance: FISH OIL\MEDIUM-CHAIN TRIGLYCERIDES\OLIVE OIL\SOYBEAN OIL
     Indication: Prophylaxis
     Route: 042
     Dates: start: 20211006, end: 20211006
  27. HUMALOG [Concomitant]
     Active Substance: INSULIN LISPRO
     Indication: Diabetes mellitus
     Route: 042
     Dates: start: 20211006, end: 20211006
  28. AMINO ACIDS, SOURCE UNSPECIFIED [Concomitant]
     Active Substance: AMINO ACIDS, SOURCE UNSPECIFIED
     Indication: Prophylaxis
     Route: 042
     Dates: start: 20211007, end: 20211007
  29. VITAMINS [Concomitant]
     Active Substance: VITAMINS
     Indication: Prophylaxis
     Route: 042
     Dates: start: 20211007, end: 20211007
  30. DEXTROSE;POTASSIUM CHLORIDE;SODIUM CHLORIDE [Concomitant]
     Indication: Prophylaxis
     Route: 042
     Dates: start: 20211007, end: 20211007
  31. CREDOUBLE [Concomitant]
     Indication: Dyslipidaemia
     Dosage: 1 T, 1X/DAY, [EZETIMIBE 10MG]/[ROSUVASTATIN CALCIUM 5.2MG]
     Route: 048
     Dates: start: 20211008, end: 20211009
  32. DIABEX [Concomitant]
     Active Substance: METFORMIN HYDROCHLORIDE
     Indication: Diabetes mellitus
     Dosage: 250 MG, 1X/DAY
     Route: 048
     Dates: start: 20211008, end: 20211009
  33. BEARDIPINE S [Concomitant]
     Indication: Hypertension
     Dosage: 1.25 MG, 1X/DAY
     Route: 048
     Dates: start: 20211008, end: 20211009
  34. CLOPIDOGREL BISULFATE [Concomitant]
     Active Substance: CLOPIDOGREL BISULFATE
     Indication: Angina pectoris
     Dosage: 75 MG, 1X/DAY
     Route: 048
     Dates: start: 20211008, end: 20211009
  35. MIRABEGRON [Concomitant]
     Active Substance: MIRABEGRON
     Indication: Benign prostatic hyperplasia
     Route: 048
     Dates: start: 20211008, end: 20211009
  36. THRUPASS ODT [Concomitant]
     Indication: Benign prostatic hyperplasia
     Dosage: 8 MG, 1X/DAY
     Route: 048
     Dates: start: 20211008, end: 20211009
  37. AVODART [Concomitant]
     Active Substance: DUTASTERIDE
     Indication: Benign prostatic hyperplasia
     Dosage: 0.5 MG, 1X/DAY
     Route: 048
     Dates: start: 20211008, end: 20211009

REACTIONS (1)
  - Asthenia [Recovered/Resolved]

NARRATIVE: CASE EVENT DATE: 20211010
